FAERS Safety Report 9663789 (Version 1)
Quarter: 2013Q4

REPORT INFORMATION
  Report Type: Spontaneous
  Country: US (occurrence: None)
  Receive Date: 20131030
  Receipt Date: 20131030
  Transmission Date: 20140711
  Serious: No
  Sender: FDA-Public Use
  Company Number: None

PATIENT
  Age: 30 Year
  Sex: Male
  Weight: 90.72 kg

DRUGS (1)
  1. VENLAFAXINE [Suspect]
     Indication: DEPRESSION
     Dosage: ONE PILL ONCE DAILY TAKEN BY MOUTH
     Route: 048
     Dates: start: 20131022, end: 20131030

REACTIONS (7)
  - Mood swings [None]
  - Cerebral disorder [None]
  - Suicidal ideation [None]
  - Compulsions [None]
  - Muscle twitching [None]
  - Tic [None]
  - Product substitution issue [None]
